FAERS Safety Report 18566733 (Version 1)
Quarter: 2020Q4

REPORT INFORMATION
  Report Type: Spontaneous
  Country: HK (occurrence: HK)
  Receive Date: 20201201
  Receipt Date: 20201201
  Transmission Date: 20210114
  Serious: Yes (Other)
  Sender: FDA-Public Use
  Company Number: HK-PFIZER INC-2020470145

PATIENT

DRUGS (1)
  1. VIZIMPRO [Suspect]
     Active Substance: DACOMITINIB
     Indication: NON-SMALL CELL LUNG CANCER
     Dosage: 30 MG
     Dates: start: 20201027

REACTIONS (1)
  - Carcinoembryonic antigen increased [Unknown]
